FAERS Safety Report 5824935-8 (Version None)
Quarter: 2008Q3

REPORT INFORMATION
  Report Type: 
  Country: None (occurrence: None)
  Receive Date: 20080728
  Receipt Date: 20080716
  Transmission Date: 20090109
  Serious: Yes (Other)
  Sender: FDA-Public Use
  Company Number: US-PFIZER INC-2008045353

PATIENT
  Sex: Male
  Weight: 115.9 kg

DRUGS (3)
  1. CHANTIX [Suspect]
     Indication: SMOKING CESSATION THERAPY
     Route: 048
     Dates: start: 20080430, end: 20080523
  2. PROTONIX [Concomitant]
     Indication: DYSPEPSIA
  3. ZYRTEC [Concomitant]

REACTIONS (13)
  - AGITATION [None]
  - ANGER [None]
  - BLOOD TRIGLYCERIDES INCREASED [None]
  - DIABETES MELLITUS [None]
  - FEELING JITTERY [None]
  - FORMICATION [None]
  - HIGH DENSITY LIPOPROTEIN DECREASED [None]
  - HOMICIDAL IDEATION [None]
  - HUNGER [None]
  - PARADOXICAL DRUG REACTION [None]
  - SUICIDAL IDEATION [None]
  - TOBACCO USER [None]
  - VIOLENCE-RELATED SYMPTOM [None]
